FAERS Safety Report 19401036 (Version 1)
Quarter: 2021Q2

REPORT INFORMATION
  Report Type: Spontaneous
  Country: NL (occurrence: NL)
  Receive Date: 20210610
  Receipt Date: 20210610
  Transmission Date: 20210717
  Serious: Yes (Hospitalization)
  Sender: FDA-Public Use
  Company Number: NL-TEVA-2021-NL-1920200

PATIENT
  Age: 78 Year
  Sex: Male
  Weight: 95 kg

DRUGS (1)
  1. COTRIMOXAZOL 960 TABLET 160/800MG / BRAND NAME NOT SPECIFIED [Suspect]
     Active Substance: SULFAMETHOXAZOLE\TRIMETHOPRIM
     Indication: CYSTITIS
     Dosage: 2 DOSAGE FORMS DAILY;
     Dates: start: 20210503, end: 20210512

REACTIONS (4)
  - Small intestine ulcer [Unknown]
  - Anaemia [Unknown]
  - Constipation [Unknown]
  - Therapeutic response unexpected [Unknown]

NARRATIVE: CASE EVENT DATE: 20210516
